FAERS Safety Report 5432923-9 (Version None)
Quarter: 2007Q3

REPORT INFORMATION
  Report Type: 
  Country: None (occurrence: None)
  Receive Date: 20070831
  Receipt Date: 20070819
  Transmission Date: 20080115
  Serious: No
  Sender: FDA-Public Use
  Company Number: A0663255A

PATIENT
  Age: 25 Year
  Sex: Female

DRUGS (2)
  1. ALLI [Suspect]
     Indication: WEIGHT LOSS DIET
     Dosage: 6CAP PER DAY
     Route: 048
     Dates: start: 20070704, end: 20070705
  2. BENADRYL [Suspect]
     Route: 065

REACTIONS (8)
  - DYSPNOEA [None]
  - FEELING ABNORMAL [None]
  - HYPERSENSITIVITY [None]
  - HYPERVENTILATION [None]
  - MUSCLE TIGHTNESS [None]
  - PALPITATIONS [None]
  - SWOLLEN TONGUE [None]
  - THROAT TIGHTNESS [None]
